FAERS Safety Report 23433985 (Version 2)
Quarter: 2024Q1

REPORT INFORMATION
  Report Type: Report from Study
  Country: GB (occurrence: GB)
  Receive Date: 20240123
  Receipt Date: 20240201
  Transmission Date: 20240409
  Serious: Yes (Other)
  Sender: FDA-Public Use
  Company Number: GB-SANDOZ-SDZ2024GB006788

PATIENT
  Sex: Female

DRUGS (1)
  1. HYRIMOZ [Suspect]
     Active Substance: ADALIMUMAB-ADAZ
     Indication: Ankylosing spondylitis
     Dosage: 40 MG, Q2W (EOW); 2 PRE-FILLED DISPOSABLE INJECTION
     Route: 058
     Dates: start: 20231229

REACTIONS (8)
  - Suicidal ideation [Unknown]
  - Depressed mood [Unknown]
  - General physical health deterioration [Unknown]
  - Paranoid personality disorder [Unknown]
  - Peripheral swelling [Unknown]
  - Skin fissures [Unknown]
  - Onychoclasis [Unknown]
  - Musculoskeletal stiffness [Unknown]
